FAERS Safety Report 11632261 (Version 5)
Quarter: 2017Q1

REPORT INFORMATION
  Report Type: Report from Study
  Country: FR (occurrence: FR)
  Receive Date: 20151015
  Receipt Date: 20170308
  Transmission Date: 20170428
  Serious: Yes (Hospitalization)
  Sender: FDA-Public Use
  Company Number: PHHY2015FR123980

PATIENT
  Age: 76 Year
  Sex: Female

DRUGS (8)
  1. DIFFU K [Concomitant]
     Active Substance: POTASSIUM CHLORIDE
     Indication: PRODUCT USED FOR UNKNOWN INDICATION
     Dosage: 600 MG, TID
     Route: 065
  2. ZOFRON [Concomitant]
     Active Substance: ONDANSETRON
     Indication: PRODUCT USED FOR UNKNOWN INDICATION
     Dosage: 8 MG, BID
     Route: 065
  3. LOVENOX [Concomitant]
     Active Substance: ENOXAPARIN SODIUM
     Indication: PRODUCT USED FOR UNKNOWN INDICATION
     Dosage: 0.4 ML, QD
     Route: 058
  4. XGEVA [Concomitant]
     Active Substance: DENOSUMAB
     Indication: PRODUCT USED FOR UNKNOWN INDICATION
     Dosage: 120 OT, QMO
     Route: 058
     Dates: end: 20150302
  5. APROVEL [Concomitant]
     Active Substance: IRBESARTAN
     Indication: PRODUCT USED FOR UNKNOWN INDICATION
     Dosage: 300 MG, QD
     Route: 065
  6. EXEMESTANE. [Concomitant]
     Active Substance: EXEMESTANE
     Indication: BREAST CANCER
     Dosage: 25 MG, QD
     Route: 048
     Dates: start: 20150112, end: 20150309
  7. TANGANIL [Concomitant]
     Active Substance: ACETYLLEUCINE
     Indication: PRODUCT USED FOR UNKNOWN INDICATION
     Dosage: 500 MG, TID
     Route: 065
  8. AFINITOR [Suspect]
     Active Substance: EVEROLIMUS
     Indication: BREAST CANCER
     Dosage: 10 MG, UNK
     Route: 048
     Dates: start: 20150112, end: 20150309

REACTIONS (20)
  - Thrombocytopenia [Recovered/Resolved]
  - Lung disorder [Unknown]
  - Anaemia [Recovered/Resolved]
  - Bone marrow disorder [Unknown]
  - Pleural effusion [Recovering/Resolving]
  - Malignant neoplasm progression [Unknown]
  - Escherichia infection [Unknown]
  - Renal failure [Recovered/Resolved]
  - Pyrexia [Unknown]
  - Hypoxia [Recovered/Resolved]
  - Dyspnoea [Unknown]
  - Back pain [Recovered/Resolved]
  - Fluid overload [Recovered/Resolved]
  - Renal impairment [Recovered/Resolved]
  - Infection [Recovered/Resolved]
  - Urinary tract infection [Unknown]
  - Rash macular [Recovered/Resolved]
  - General physical health deterioration [Recovered/Resolved]
  - Pulmonary mass [Unknown]
  - Musculoskeletal pain [Recovered/Resolved]

NARRATIVE: CASE EVENT DATE: 20150112
